FAERS Safety Report 9631245 (Version 1)
Quarter: 2013Q4

REPORT INFORMATION
  Report Type: Spontaneous
  Country: DE (occurrence: DE)
  Receive Date: 20131018
  Receipt Date: 20131018
  Transmission Date: 20140711
  Serious: Yes (Congenital Anomaly)
  Sender: FDA-Public Use
  Company Number: DE-TEVA-437441GER

PATIENT
  Age: 0 Year
  Sex: Male

DRUGS (5)
  1. RAMIPRIL [Suspect]
     Route: 064
  2. FERROUS SULFATE\GLYCINE [Suspect]
     Route: 064
  3. DOPEGYT [Suspect]
     Route: 064
  4. UTROGEST [Suspect]
     Route: 064
  5. FOLSAEURE [Concomitant]
     Route: 064

REACTIONS (3)
  - Ureteric dilatation [Not Recovered/Not Resolved]
  - Congenital hydronephrosis [Not Recovered/Not Resolved]
  - Neonatal behavioural syndrome [Recovered/Resolved]
